FAERS Safety Report 6380412-X (Version None)
Quarter: 2009Q3

REPORT INFORMATION
  Report Type: 
  Country: None (occurrence: None)
  Receive Date: 20090929
  Receipt Date: 20090915
  Transmission Date: 20100115
  Serious: Yes (Hospitalization, Other)
  Sender: FDA-Public Use
  Company Number: JP-BRISTOL-MYERS SQUIBB COMPANY-13353420

PATIENT
  Age: 27 Year
  Sex: Female

DRUGS (9)
  1. ZERIT [Suspect]
     Indication: HIV INFECTION
     Route: 048
     Dates: start: 20041025, end: 20051113
  2. EPIVIR [Suspect]
     Indication: HIV INFECTION
     Route: 048
     Dates: start: 20041025, end: 20051113
  3. KALETRA [Suspect]
     Indication: HIV INFECTION
     Route: 048
     Dates: start: 20041025, end: 20050908
  4. STOCRIN [Concomitant]
     Route: 048
     Dates: start: 20050909
  5. ESANBUTOL [Concomitant]
     Route: 048
     Dates: start: 20040825
  6. CIPROXAN [Concomitant]
     Route: 048
     Dates: start: 20040825, end: 20041120
  7. LEVOFLOXACIN [Concomitant]
     Route: 048
     Dates: start: 20041121, end: 20050718
  8. DIFLUCAN [Concomitant]
     Route: 048
     Dates: start: 20040817, end: 20050711
  9. ZITHROMAX [Concomitant]
     Route: 048
     Dates: start: 20040825, end: 20050718

REACTIONS (3)
  - IMMUNE RECONSTITUTION SYNDROME [None]
  - MYCOBACTERIUM AVIUM COMPLEX IMMUNE RESTORATION DISEASE [None]
  - PROTEIN-LOSING GASTROENTEROPATHY [None]
